FAERS Safety Report 16206038 (Version 1)
Quarter: 2019Q2

REPORT INFORMATION
  Report Type: Spontaneous
  Country: SK (occurrence: SK)
  Receive Date: 20190417
  Receipt Date: 20190417
  Transmission Date: 20190711
  Serious: Yes (Life-Threatening, Hospitalization)
  Sender: FDA-Public Use
  Company Number: SK-ORION CORPORATION ORION PHARMA-19_00006053

PATIENT
  Age: 68 Year
  Sex: Female

DRUGS (2)
  1. METHOTREXATE (TRADE NAME UNKNOWN) [Suspect]
     Active Substance: METHOTREXATE
     Indication: RHEUMATOID ARTHRITIS
     Route: 065
  2. METHOTREXATE (TRADE NAME UNKNOWN) [Suspect]
     Active Substance: METHOTREXATE
     Route: 065

REACTIONS (12)
  - Inflammation [Not Recovered/Not Resolved]
  - Bone marrow failure [Not Recovered/Not Resolved]
  - Mouth ulceration [Not Recovered/Not Resolved]
  - Body temperature increased [Not Recovered/Not Resolved]
  - Pancytopenia [Not Recovered/Not Resolved]
  - Sepsis [Not Recovered/Not Resolved]
  - Haematuria [Not Recovered/Not Resolved]
  - Product use issue [Not Recovered/Not Resolved]
  - Skin ulcer [Not Recovered/Not Resolved]
  - Overdose [Not Recovered/Not Resolved]
  - Medication error [Not Recovered/Not Resolved]
  - Cough [Not Recovered/Not Resolved]
